FAERS Safety Report 5116404-8 (Version None)
Quarter: 2006Q3

REPORT INFORMATION
  Report Type: 
  Country: None (occurrence: None)
  Receive Date: 20060928
  Receipt Date: 20060803
  Transmission Date: 20061208
  Serious: Yes (Hospitalization)
  Sender: FDA-Public Use
  Company Number: FR-AVENTIS-200612754FR

PATIENT
  Age: 30 Year
  Sex: Male

DRUGS (4)
  1. LASIX [Suspect]
     Route: 042
     Dates: start: 20060621, end: 20060627
  2. CIFLOX [Suspect]
     Route: 042
     Dates: start: 20060621
  3. TIENAM [Suspect]
     Route: 042
     Dates: start: 20060621
  4. ACUPAN [Suspect]
     Route: 042

REACTIONS (1)
  - STATUS EPILEPTICUS [None]
